FAERS Safety Report 7558357-9 (Version None)
Quarter: 2011Q2

REPORT INFORMATION
  Report Type: 
  Country: None (occurrence: None)
  Receive Date: 20110620
  Receipt Date: 20110616
  Transmission Date: 20111010
  Serious: Yes (Death, Hospitalization, Other)
  Sender: FDA-Public Use
  Company Number: US-ASTRAZENECA-2011SE31334

PATIENT
  Age: 85 Year
  Sex: Male

DRUGS (1)
  1. SYMBICORT [Suspect]
     Indication: CHRONIC OBSTRUCTIVE PULMONARY DISEASE
     Dosage: UNKNOWN
     Route: 055

REACTIONS (4)
  - CHOLECYSTITIS INFECTIVE [None]
  - ASPIRATION [None]
  - RESPIRATORY FAILURE [None]
  - BILIARY DRAINAGE [None]
